FAERS Safety Report 14251443 (Version 4)
Quarter: 2018Q1

REPORT INFORMATION
  Report Type: Report from Study
  Country: US (occurrence: US)
  Receive Date: 20171205
  Receipt Date: 20180321
  Transmission Date: 20180508
  Serious: Yes (Hospitalization, Other)
  Sender: FDA-Public Use
  Company Number: US-ACTELION-A-US2017-151857

PATIENT
  Age: 52 Year
  Sex: Female

DRUGS (2)
  1. UPTRAVI [Suspect]
     Active Substance: SELEXIPAG
     Indication: PULMONARY ARTERIAL HYPERTENSION
     Dosage: 400 MCG, BID
     Route: 048
     Dates: start: 20160223, end: 20180205
  2. UPTRAVI [Suspect]
     Active Substance: SELEXIPAG
     Dosage: 600 MCG, BID
     Route: 048
     Dates: start: 20170629

REACTIONS (9)
  - Breast cancer [Unknown]
  - Heart rate irregular [Unknown]
  - Nasopharyngitis [Unknown]
  - Drug intolerance [Unknown]
  - Dizziness [Unknown]
  - Cough [Unknown]
  - Diarrhoea [Unknown]
  - Abdominal discomfort [Unknown]
  - Cancer surgery [Unknown]

NARRATIVE: CASE EVENT DATE: 201711
